FAERS Safety Report 10755508 (Version 3)
Quarter: 2015Q1

REPORT INFORMATION
  Report Type: Spontaneous
  Country: DE (occurrence: DE)
  Receive Date: 20150202
  Receipt Date: 20150219
  Transmission Date: 20150721
  Serious: Yes (Death, Hospitalization)
  Sender: FDA-Public Use
  Company Number: DE-ABBVIE-15P-062-1341188-00

PATIENT
  Age: 63 Year
  Sex: Male

DRUGS (1)
  1. DUODOPA [Suspect]
     Active Substance: CARBIDOPA\LEVODOPA
     Indication: PARKINSON^S DISEASE
     Dosage: MD 9 ML/H, CRD 4.7 ML/HR, CRN 2.5 ML/HR, ED 1.5 ML/H
     Route: 050
     Dates: start: 20121205, end: 20150214

REACTIONS (5)
  - Bronchopneumonia [Fatal]
  - Hallucination [Not Recovered/Not Resolved]
  - Infection [Fatal]
  - Dehydration [Not Recovered/Not Resolved]
  - Pyrexia [Fatal]

NARRATIVE: CASE EVENT DATE: 20150201
